FAERS Safety Report 19496299 (Version 1)
Quarter: 2021Q3

REPORT INFORMATION
  Report Type: Spontaneous
  Country: US (occurrence: US)
  Receive Date: 20210702
  Receipt Date: 20210702
  Transmission Date: 20211014
  Serious: Yes (Hospitalization)
  Sender: FDA-Public Use
  Company Number: None

PATIENT
  Sex: Male

DRUGS (1)
  1. IMATINIB. [Suspect]
     Active Substance: IMATINIB MESYLATE
     Indication: CHRONIC MYELOID LEUKAEMIA
     Route: 048
     Dates: start: 20191207, end: 20210702

REACTIONS (6)
  - Epistaxis [None]
  - Contusion [None]
  - White blood cell count decreased [None]
  - Atrial fibrillation [None]
  - Hypotension [None]
  - Ventricular extrasystoles [None]
